FAERS Safety Report 5089755-3 (Version None)
Quarter: 2006Q3

REPORT INFORMATION
  Report Type: 
  Country: None (occurrence: None)
  Receive Date: 20060731
  Receipt Date: 20060313
  Transmission Date: 20061208
  Serious: Yes (Hospitalization)
  Sender: FDA-Public Use
  Company Number: US200602005674

PATIENT
  Age: 80 Year
  Sex: Female
  Weight: 45.4 kg

DRUGS (2)
  1. FORTEO [Suspect]
     Indication: OSTEOPOROSIS
     Dosage: 20 UG, DAILY (1/D)
  2. FORTEO [Concomitant]

REACTIONS (2)
  - ASTHENIA [None]
  - CONFUSIONAL STATE [None]
